FAERS Safety Report 5761968-4 (Version None)
Quarter: 2008Q2

REPORT INFORMATION
  Report Type: 
  Country: None (occurrence: None)
  Receive Date: 20080603
  Receipt Date: 20080519
  Transmission Date: 20081010
  Serious: Yes (Other)
  Sender: FDA-Public Use
  Company Number: 2008S1008612

PATIENT
  Age: 64 Year
  Sex: Female

DRUGS (10)
  1. CIPROFLOXACIN [Suspect]
     Indication: LOWER RESPIRATORY TRACT INFECTION
     Dosage: ORAL; TWICE A DAY
     Route: 048
     Dates: start: 20071130, end: 20071205
  2. AMITRIPTYLINE HYDROCHLORIDE [Concomitant]
  3. ATORVASTATIN CALCIUM [Concomitant]
  4. FUROSEMIDE [Concomitant]
  5. GLICLAZIDE (GLICLAZIDE) [Concomitant]
  6. NITROFURANTOIN [Concomitant]
  7. RAMIPRIL [Concomitant]
  8. ROSIGLITAZONE MALEATE [Concomitant]
  9. SERC /00034201/ (THIORIDAZONE) [Concomitant]
  10. TRAMADOL HCL [Concomitant]

REACTIONS (2)
  - MOVEMENT DISORDER [None]
  - TREMOR [None]
